FAERS Safety Report 16239573 (Version 2)
Quarter: 2021Q2

REPORT INFORMATION
  Report Type: Spontaneous
  Country: US (occurrence: US)
  Receive Date: 20190425
  Receipt Date: 20210629
  Transmission Date: 20210716
  Serious: Yes (Other)
  Sender: FDA-Public Use
  Company Number: US-BAUSCH-BL-2019-011755

PATIENT
  Age: 79 Year
  Sex: Female
  Weight: 103.24 kg

DRUGS (30)
  1. CARVEDILOL. [Concomitant]
     Active Substance: CARVEDILOL
     Indication: PRODUCT USED FOR UNKNOWN INDICATION
     Route: 048
     Dates: start: 20160527
  2. AMLODIPINE [Concomitant]
     Active Substance: AMLODIPINE BESYLATE
     Indication: BLOOD PRESSURE INCREASED
     Route: 048
  3. CLONIDINE. [Concomitant]
     Active Substance: CLONIDINE
     Indication: BLOOD PRESSURE MEASUREMENT
     Route: 048
  4. LEXAPRO [Concomitant]
     Active Substance: ESCITALOPRAM OXALATE
     Indication: INCREASED APPETITE
  5. METHOTREXATE. [Concomitant]
     Active Substance: METHOTREXATE
     Indication: PRODUCT USED FOR UNKNOWN INDICATION
     Route: 048
  6. DESENEX NOS [Concomitant]
     Active Substance: CLOTRIMAZOLE OR MICONAZOLE NITRATE
     Indication: PRODUCT USED FOR UNKNOWN INDICATION
     Route: 061
     Dates: start: 20160527
  7. FENTANYL. [Concomitant]
     Active Substance: FENTANYL
     Indication: PRODUCT USED FOR UNKNOWN INDICATION
     Dosage: 25 MCG/HOUR PATCH 72 HOUR
     Route: 061
     Dates: start: 20160526
  8. FLONASE [Concomitant]
     Active Substance: FLUTICASONE PROPIONATE
     Indication: NASAL CONGESTION
     Route: 045
  9. ASPIRIN. [Concomitant]
     Active Substance: ASPIRIN
     Indication: PRODUCT USED FOR UNKNOWN INDICATION
     Route: 048
     Dates: start: 20160527
  10. CEPHALEXIN. [Concomitant]
     Active Substance: CEPHALEXIN
     Indication: PRODUCT USED FOR UNKNOWN INDICATION
     Route: 048
  11. ECOTRIN [Concomitant]
     Active Substance: ASPIRIN
     Indication: CEREBROVASCULAR ACCIDENT
     Route: 048
  12. LISINOPRIL. [Concomitant]
     Active Substance: LISINOPRIL
     Indication: PRODUCT USED FOR UNKNOWN INDICATION
     Route: 048
     Dates: start: 20160527
  13. LASIX [Concomitant]
     Active Substance: FUROSEMIDE
     Indication: SWELLING
     Route: 048
  14. ZEGERID [Suspect]
     Active Substance: OMEPRAZOLE\SODIUM BICARBONATE
     Indication: PRODUCT USED FOR UNKNOWN INDICATION
     Route: 065
     Dates: start: 2010, end: 2016
  15. BACTROBAN [Concomitant]
     Active Substance: MUPIROCIN\MUPIROCIN CALCIUM
     Indication: INFECTION
     Route: 061
  16. DOCUSATE SODIUM. [Concomitant]
     Active Substance: DOCUSATE SODIUM
     Indication: PRODUCT USED FOR UNKNOWN INDICATION
     Route: 048
  17. ERGOCALCIFEROL. [Concomitant]
     Active Substance: ERGOCALCIFEROL
     Indication: PRODUCT USED FOR UNKNOWN INDICATION
     Route: 048
  18. ATORVASTATIN [Concomitant]
     Active Substance: ATORVASTATIN
     Indication: PRODUCT USED FOR UNKNOWN INDICATION
     Route: 048
     Dates: start: 20160527
  19. FOLIC ACID. [Concomitant]
     Active Substance: FOLIC ACID
     Indication: PRODUCT USED FOR UNKNOWN INDICATION
     Route: 048
     Dates: start: 20160527
  20. ARGINAID [Concomitant]
     Indication: PRODUCT USED FOR UNKNOWN INDICATION
     Route: 048
  21. ALBUTEROL SULFATE. [Concomitant]
     Active Substance: ALBUTEROL SULFATE
     Indication: PRODUCT USED FOR UNKNOWN INDICATION
     Route: 055
  22. PROAIR HFA [Concomitant]
     Active Substance: ALBUTEROL SULFATE
     Indication: ASTHMA
     Route: 055
  23. NEXIUM [Suspect]
     Active Substance: ESOMEPRAZOLE MAGNESIUM
     Indication: PRODUCT USED FOR UNKNOWN INDICATION
     Route: 065
     Dates: start: 2010, end: 2016
  24. PROTONIX [Suspect]
     Active Substance: PANTOPRAZOLE SODIUM
     Indication: PRODUCT USED FOR UNKNOWN INDICATION
     Route: 065
     Dates: start: 2010, end: 2016
  25. FERROUS SULFATE. [Concomitant]
     Active Substance: FERROUS SULFATE
     Indication: PRODUCT USED FOR UNKNOWN INDICATION
     Route: 048
  26. FENOFIBRATE. [Concomitant]
     Active Substance: FENOFIBRATE
     Indication: PRODUCT USED FOR UNKNOWN INDICATION
     Route: 048
  27. IPRATROPIUM/ALBUTEROL SULFATE [Concomitant]
     Indication: PRODUCT USED FOR UNKNOWN INDICATION
     Dosage: USE WITH NEBULIZER FOR BREATHING
     Route: 048
  28. LASIX [Concomitant]
     Active Substance: FUROSEMIDE
     Indication: HYPERTENSION
  29. LEXAPRO [Concomitant]
     Active Substance: ESCITALOPRAM OXALATE
     Indication: AFFECTIVE DISORDER
     Route: 048
  30. SPIRONOLACTONE. [Concomitant]
     Active Substance: SPIRONOLACTONE
     Indication: SWELLING
     Route: 048

REACTIONS (1)
  - Chronic kidney disease [Unknown]
